FAERS Safety Report 9224823 (Version 1)
Quarter: 2013Q1

REPORT INFORMATION
  Report Type: Spontaneous
  Country: US (occurrence: None)
  Receive Date: 20120914
  Receipt Date: 20120914
  Transmission Date: 20140127
  Serious: Yes (Other)
  Sender: FDA-Public Use
  Company Number: JPI-P-019927

PATIENT
  Age: 19 Year
  Sex: Female

DRUGS (2)
  1. XYREM (500 MILLIGRAM/MILLILITERS, SOLUTION) (SODIUM OXYBATE) [Suspect]
     Indication: CATAPLEXY
     Route: 048
     Dates: start: 20120209, end: 20120213
  2. MODAFINIL [Concomitant]

REACTIONS (11)
  - Suicidal ideation [None]
  - Nausea [None]
  - Abdominal pain upper [None]
  - Cataplexy [None]
  - Hypoaesthesia [None]
  - Pain in extremity [None]
  - Crying [None]
  - Fatigue [None]
  - Dyspnoea [None]
  - Chest discomfort [None]
  - Somnolence [None]
